FAERS Safety Report 6761072-2 (Version None)
Quarter: 2010Q2

REPORT INFORMATION
  Report Type: 
  Country: None (occurrence: None)
  Receive Date: 20100608
  Receipt Date: 20100531
  Transmission Date: 20101027
  Serious: Yes (Life-Threatening, Hospitalization)
  Sender: FDA-Public Use
  Company Number: B0659301A

PATIENT
  Age: 73 Year
  Sex: Male

DRUGS (5)
  1. AVANDAMET [Suspect]
     Route: 048
     Dates: start: 20070323, end: 20100422
  2. ALLOPURINOL [Concomitant]
  3. CRESTOR [Concomitant]
  4. ALDACTONE [Concomitant]
  5. TORASEMIDE [Concomitant]

REACTIONS (6)
  - ACUTE PULMONARY OEDEMA [None]
  - CONGESTIVE CARDIOMYOPATHY [None]
  - CORONARY ARTERY DISEASE [None]
  - LEFT VENTRICULAR DYSFUNCTION [None]
  - MYOCARDIAL ISCHAEMIA [None]
  - PULMONARY HYPERTENSION [None]
